FAERS Safety Report 11911524 (Version 1)
Quarter: 2016Q1

REPORT INFORMATION
  Report Type: Spontaneous
  Country: US (occurrence: US)
  Receive Date: 20160112
  Receipt Date: 20160112
  Transmission Date: 20160526
  Serious: Yes (Other)
  Sender: FDA-Public Use
  Company Number: US-PFIZER INC-2016009654

PATIENT
  Age: 49 Year
  Sex: Male
  Weight: 106.5 kg

DRUGS (9)
  1. LISINOPRIL. [Concomitant]
     Active Substance: LISINOPRIL
     Indication: DIABETES MELLITUS
     Dosage: 40 MG, ONE IN THE EVENING
     Route: 048
  2. CLOPIDOGREL [Concomitant]
     Active Substance: CLOPIDOGREL BISULFATE
     Dosage: 75 MG, ONCE AT NIGHT
     Route: 048
  3. CALCIUM ACETATE. [Concomitant]
     Active Substance: CALCIUM ACETATE
     Indication: BLOOD PHOSPHORUS ABNORMAL
     Dosage: 667 MG, AS NEEDED AS HE EATS
     Route: 048
  4. LEVEMIR [Concomitant]
     Active Substance: INSULIN DETEMIR
     Indication: DIABETES MELLITUS
     Dosage: 25 UNITS IN THE EVENING
  5. NICOTROL [Suspect]
     Active Substance: NICOTINE
     Indication: SMOKING CESSATION THERAPY
     Dosage: 4MG INHALED, INHALE 1 PUFF INTO LUNGS EVERY 2 HOURS
     Route: 055
  6. METOPROLOL. [Concomitant]
     Active Substance: METOPROLOL
     Dosage: 50 MG, ONE IN THE EVENING
     Route: 048
  7. PRAVASTATIN [Concomitant]
     Active Substance: PRAVASTATIN\PRAVASTATIN SODIUM
     Dosage: 80 MG, ONE IN THE EVENING
     Route: 048
  8. BABY ASPIRIN [Concomitant]
     Active Substance: ASPIRIN
     Indication: BLOOD DISORDER
     Dosage: 2 BY MOUTH IN THE EVENING
     Route: 048
  9. AMLODIPINE [Concomitant]
     Active Substance: AMLODIPINE BESYLATE
     Dosage: 10 MG, ONE EVERY EVENING
     Route: 048

REACTIONS (4)
  - Pulmonary mass [Not Recovered/Not Resolved]
  - Cough [Not Recovered/Not Resolved]
  - Drug ineffective [Not Recovered/Not Resolved]
  - Renal failure [Not Recovered/Not Resolved]

NARRATIVE: CASE EVENT DATE: 201503
